FAERS Safety Report 7517066-2 (Version None)
Quarter: 2011Q2

REPORT INFORMATION
  Report Type: 
  Country: None (occurrence: None)
  Receive Date: 20110601
  Receipt Date: 20110525
  Transmission Date: 20111010
  Serious: Yes (Other)
  Sender: FDA-Public Use
  Company Number: DE-TEVA-283395GER

PATIENT
  Age: 73 Year
  Sex: Male

DRUGS (2)
  1. TEMOZOLOMIDE [Suspect]
  2. KEPPRA [Concomitant]

REACTIONS (1)
  - RENAL FAILURE ACUTE [None]
